FAERS Safety Report 12385146 (Version 1)
Quarter: 2016Q2

REPORT INFORMATION
  Report Type: Spontaneous
  Country: US (occurrence: US)
  Receive Date: 20160519
  Receipt Date: 20160519
  Transmission Date: 20160815
  Serious: No
  Sender: FDA-Public Use
  Company Number: US-WATSON-2015-22670

PATIENT
  Age: 49 Year
  Sex: Female
  Weight: 74 kg

DRUGS (3)
  1. SULFAMETHOXAZOLE/TRIMETHOPRIM UNKNOWN STRENGTH (WATSON LABORATORIES) [Suspect]
     Active Substance: SULFAMETHOXAZOLE\TRIMETHOPRIM
     Indication: ANTIBIOTIC THERAPY
     Dosage: 2 DF, DAILY
     Route: 048
     Dates: start: 20150817, end: 20150821
  2. NEUTROGENA TGEL THERAPEUTIC [Concomitant]
     Active Substance: COAL TAR
     Indication: PRODUCT USED FOR UNKNOWN INDICATION
     Dosage: UNK UNK, 2/WEEK
     Route: 061
  3. HYDROXYZINE [Concomitant]
     Active Substance: HYDROXYZINE\HYDROXYZINE HYDROCHLORIDE
     Indication: PRURITUS
     Dosage: ONE 25 MG TABLET, FOUR TIMES A DAY
     Route: 048
     Dates: start: 20150817

REACTIONS (4)
  - Abdominal pain upper [Recovered/Resolved]
  - Therapy cessation [None]
  - Confusional state [Recovered/Resolved]
  - Vomiting [Recovered/Resolved]

NARRATIVE: CASE EVENT DATE: 20150824
